FAERS Safety Report 9236085 (Version 2)
Quarter: 2013Q2

REPORT INFORMATION
  Report Type: Spontaneous
  Country: JP (occurrence: JP)
  Receive Date: 20130417
  Receipt Date: 20130501
  Transmission Date: 20140414
  Serious: Yes (Death, Life-Threatening)
  Sender: FDA-Public Use
  Company Number: JP-OTSUKA-JP-2013-10974

PATIENT
  Age: 6 Month
  Sex: Male

DRUGS (3)
  1. BUSULFEX [Suspect]
     Indication: CORD BLOOD TRANSPLANT THERAPY
     Dosage: 4 MG/KG, DAILY DOSE
     Route: 042
  2. ETOPOSIDE [Concomitant]
     Indication: CORD BLOOD TRANSPLANT THERAPY
     Dosage: UNK
     Route: 065
  3. CYCLOPHOSPHAMIDE [Concomitant]
     Indication: CORD BLOOD TRANSPLANT THERAPY
     Route: 065

REACTIONS (3)
  - Infection [Fatal]
  - Non-cardiogenic pulmonary oedema [Recovered/Resolved]
  - Venoocclusive liver disease [Recovered/Resolved]
